FAERS Safety Report 9028693 (Version 1)
Quarter: 2013Q1

REPORT INFORMATION
  Report Type: Spontaneous
  Country: AR (occurrence: AR)
  Receive Date: 20130124
  Receipt Date: 20130124
  Transmission Date: 20140127
  Serious: Yes (Other)
  Sender: FDA-Public Use
  Company Number: PHHY2013AR006633

PATIENT
  Sex: Female

DRUGS (2)
  1. ACLASTA [Suspect]
     Indication: OSTEOPOROSIS
     Dosage: UNK UKN, ANNUALLY
     Route: 042
  2. ACLASTA [Suspect]
     Dosage: UNK UKN, ANNUALLY
     Route: 042
     Dates: start: 201203

REACTIONS (2)
  - Haemangioma of bone [Not Recovered/Not Resolved]
  - Spinal pain [Recovering/Resolving]
